FAERS Safety Report 5481409-4 (Version None)
Quarter: 2007Q4

REPORT INFORMATION
  Report Type: 
  Country: None (occurrence: None)
  Receive Date: 20071010
  Receipt Date: 20071005
  Transmission Date: 20080405
  Serious: Yes (Other)
  Sender: FDA-Public Use
  Company Number: A0686371A

PATIENT
  Age: 51 Year
  Sex: Female

DRUGS (8)
  1. FLOVENT [Suspect]
     Indication: ASTHMA
     Route: 055
     Dates: start: 19990101
  2. SEREVENT [Concomitant]
  3. FOSAMAX [Concomitant]
  4. THEOPHYLLINE [Concomitant]
  5. FOLIC ACID [Concomitant]
  6. DICLOFENAC SODIUM [Concomitant]
  7. MEDROL (PAK) [Concomitant]
  8. METHOTREXATE [Concomitant]

REACTIONS (7)
  - ASTHMA [None]
  - LOCALISED INFECTION [None]
  - MALAISE [None]
  - MENOPAUSE [None]
  - OVERDOSE [None]
  - RHEUMATOID ARTHRITIS [None]
  - TINEA PEDIS [None]
